FAERS Safety Report 17980573 (Version 1)
Quarter: 2020Q3

REPORT INFORMATION
  Report Type: Report from Study
  Country: None (occurrence: US)
  Receive Date: 20200704
  Receipt Date: 20200704
  Transmission Date: 20201103
  Serious: Yes (Hospitalization, Other)
  Sender: FDA-Public Use
  Company Number: US-ABBVIE-20K-163-3468568-00

PATIENT
  Age: 76 Year
  Sex: Male

DRUGS (1)
  1. DUOPA [Suspect]
     Active Substance: CARBIDOPA\LEVODOPA
     Indication: PRODUCT USED FOR UNKNOWN INDICATION
     Route: 050
     Dates: start: 20191108

REACTIONS (5)
  - Oxygen saturation decreased [Unknown]
  - Pneumonia aspiration [Unknown]
  - Device occlusion [Unknown]
  - Device dislocation [Unknown]
  - Emphysema [Unknown]

NARRATIVE: CASE EVENT DATE: 202006
